FAERS Safety Report 23285758 (Version 1)
Quarter: 2023Q4

REPORT INFORMATION
  Report Type: Spontaneous
  Country: None (occurrence: US)
  Receive Date: 20231212
  Receipt Date: 20231212
  Transmission Date: 20240109
  Serious: Yes (Other)
  Sender: FDA-Public Use
  Company Number: US-Harrow Eye-2149218

PATIENT
  Age: 33 Year
  Sex: Female

DRUGS (7)
  1. AZITHROMYCIN [Suspect]
     Active Substance: AZITHROMYCIN
     Indication: Mycobacterium abscessus infection
     Route: 048
  2. CLARITHROMYCIN [Suspect]
     Active Substance: CLARITHROMYCIN
  3. MINOCYCLINE [Suspect]
     Active Substance: MINOCYCLINE HYDROCHLORIDE
  4. TIGECYCLINE [Suspect]
     Active Substance: TIGECYCLINE
  5. MOXIFLOXACIN [Suspect]
     Active Substance: MOXIFLOXACIN
  6. AMIKACIN SULFATE [Suspect]
     Active Substance: AMIKACIN SULFATE
  7. IMIPENEM [Suspect]
     Active Substance: IMIPENEM
     Route: 042

REACTIONS (3)
  - Mycobacterium abscessus infection [Unknown]
  - Implant site infection [Unknown]
  - Drug hypersensitivity [Unknown]
